FAERS Safety Report 7352583-X (Version None)
Quarter: 2011Q1

REPORT INFORMATION
  Report Type: 
  Country: None (occurrence: None)
  Receive Date: 20110307
  Receipt Date: 20101001
  Transmission Date: 20110831
  Serious: Yes (Hospitalization)
  Sender: FDA-Public Use
  Company Number: DSA_65295_2010

PATIENT
  Sex: Female
  Weight: 72.5755 kg

DRUGS (2)
  1. NAPRELAN [Suspect]
     Indication: HEADACHE
     Dosage: (1 DF BID ORAL)
     Route: 048
     Dates: start: 20100224, end: 20100301
  2. NAPRELAN [Suspect]
     Indication: MUSCLE SPASMS
     Dosage: (1 DF BID ORAL)
     Route: 048
     Dates: start: 20100224, end: 20100301

REACTIONS (2)
  - INAPPROPRIATE SCHEDULE OF DRUG ADMINISTRATION [None]
  - GASTROINTESTINAL HAEMORRHAGE [None]
